FAERS Safety Report 11716176 (Version 2)
Quarter: 2015Q4

REPORT INFORMATION
  Report Type: Spontaneous
  Country: US (occurrence: US)
  Receive Date: 20151104
  Receipt Date: 20151110
  Transmission Date: 20160304
  Serious: No
  Sender: FDA-Public Use
  Company Number: US-ELI_LILLY_AND_COMPANY-US201107001734

PATIENT
  Age: 59 Year
  Sex: Female

DRUGS (2)
  1. LYRICA [Concomitant]
     Active Substance: PREGABALIN
  2. FORTEO [Suspect]
     Active Substance: TERIPARATIDE
     Indication: OSTEOPOROSIS
     Dosage: 20 UG, QD
     Route: 065
     Dates: start: 201106

REACTIONS (14)
  - Neuralgia [Unknown]
  - Mobility decreased [Unknown]
  - Vomiting [Not Recovered/Not Resolved]
  - Injection site bruising [Not Recovered/Not Resolved]
  - Asthenia [Not Recovered/Not Resolved]
  - Arthritis [Unknown]
  - Myalgia [Unknown]
  - Malaise [Unknown]
  - Feeding disorder [Not Recovered/Not Resolved]
  - Tooth delamination [Unknown]
  - Sensory disturbance [Unknown]
  - Fibromyalgia [Unknown]
  - Headache [Not Recovered/Not Resolved]
  - Injection site pain [Unknown]

NARRATIVE: CASE EVENT DATE: 20110614
